FAERS Safety Report 16163258 (Version 1)
Quarter: 2019Q2

REPORT INFORMATION
  Report Type: Spontaneous
  Country: US (occurrence: US)
  Receive Date: 20190404
  Receipt Date: 20190404
  Transmission Date: 20190711
  Serious: Yes (Other)
  Sender: FDA-Public Use
  Company Number: None

PATIENT
  Age: 31 Year
  Sex: Female

DRUGS (4)
  1. AZATHIOPRINE 50MG [Concomitant]
     Active Substance: AZATHIOPRINE
     Dates: start: 20190307
  2. HUMIRA [Suspect]
     Active Substance: ADALIMUMAB
     Indication: CROHN^S DISEASE
     Dosage: ?          OTHER FREQUENCY:EVERY OTHER WEEK;?
     Route: 058
     Dates: start: 20190323
  3. PANTOPRAZOLE 40MG [Concomitant]
     Active Substance: PANTOPRAZOLE SODIUM
     Dates: start: 20190129
  4. LOPERAMIDE 2MG [Concomitant]
     Active Substance: LOPERAMIDE
     Dates: start: 20190115

REACTIONS (1)
  - Crohn^s disease [None]
